FAERS Safety Report 23874279 (Version 1)
Quarter: 2024Q2

REPORT INFORMATION
  Report Type: Spontaneous
  Country: US (occurrence: None)
  Receive Date: 20240520
  Receipt Date: 20240520
  Transmission Date: 20240715
  Serious: No
  Sender: FDA-Public Use
  Company Number: None

PATIENT
  Age: 52 Year
  Sex: Female

DRUGS (21)
  1. TUBERCULIN PURIFIED PROTEIN DERIVATIVE [Suspect]
     Active Substance: TUBERCULIN PURIFIED PROTEIN DERIVATIVE
     Route: 023
  2. TIROSINT [Concomitant]
     Active Substance: LEVOTHYROXINE SODIUM
  3. Leothyronine [Concomitant]
  4. HYDROXYZINE [Concomitant]
     Active Substance: HYDROXYZINE HYDROCHLORIDE
  5. CONTRAVE [Concomitant]
     Active Substance: BUPROPION HYDROCHLORIDE\NALTREXONE HYDROCHLORIDE
  6. VITAMIN D3 [Concomitant]
     Active Substance: CHOLECALCIFEROL
  7. BILBERRY [Concomitant]
     Active Substance: BILBERRY
  8. NAC [Concomitant]
  9. BERBERINE [Concomitant]
     Active Substance: BERBERINE
  10. WHITE WILLOW BARK [Concomitant]
  11. Eggshell Membrane [Concomitant]
  12. DIETARY SUPPLEMENT [Concomitant]
     Active Substance: DIETARY SUPPLEMENT
  13. Freshwater Pearl [Concomitant]
  14. Lion?s Mane [Concomitant]
  15. Active B Complex [Concomitant]
  16. Odorless Garlic [Concomitant]
  17. Quercetan [Concomitant]
  18. Sting Nettles [Concomitant]
  19. DIETARY SUPPLEMENT [Concomitant]
     Active Substance: DIETARY SUPPLEMENT
  20. FISH OIL [Concomitant]
     Active Substance: FISH OIL
  21. COENZYME Q10 [Concomitant]
     Active Substance: DIETARY SUPPLEMENT\UBIDECARENONE

REACTIONS (4)
  - Injection site pain [None]
  - Injection site discomfort [None]
  - Injection site paraesthesia [None]
  - Injection site bruising [None]

NARRATIVE: CASE EVENT DATE: 20240417
